FAERS Safety Report 8898066 (Version 1)
Quarter: 2012Q4

REPORT INFORMATION
  Report Type: 
  Country: US (occurrence: US)
  Receive Date: 20121108
  Receipt Date: 20121108
  Transmission Date: 20130627
  Serious: No
  Sender: FDA-Public Use
  Company Number: US-AMGEN-USASP2012034321

PATIENT
  Age: 29 Year
  Sex: Male

DRUGS (2)
  1. ENBREL [Suspect]
     Indication: REITER^S SYNDROME
     Dosage: 50 mg, qwk
     Dates: start: 20100601
  2. MOBIC [Concomitant]
     Dosage: UNK

REACTIONS (1)
  - Joint stiffness [Not Recovered/Not Resolved]
